FAERS Safety Report 9636713 (Version 1)
Quarter: 2013Q4

REPORT INFORMATION
  Report Type: Spontaneous
  Country: US (occurrence: US)
  Receive Date: 20131022
  Receipt Date: 20131022
  Transmission Date: 20140711
  Serious: Yes (Other)
  Sender: FDA-Public Use
  Company Number: US-PAR PHARMACEUTICAL, INC-2013SCPR007718

PATIENT
  Sex: 0

DRUGS (22)
  1. RISPERIDONE [Suspect]
     Indication: AUTISM SPECTRUM DISORDER
     Dosage: 2 MG, HS
     Route: 065
  2. RISPERIDONE [Suspect]
     Indication: ABNORMAL BEHAVIOUR
     Dosage: 4 MG, / DAY
     Route: 065
  3. RISPERIDONE [Suspect]
     Dosage: 0.5 MG, / DAY
     Route: 065
  4. RISPERIDONE [Suspect]
     Dosage: 4 MG, / DAY
     Route: 065
  5. RISPERIDONE [Suspect]
     Dosage: 6 MG, / DAY
     Route: 065
  6. CLOMIPRAMINE [Suspect]
     Indication: OBSESSIVE-COMPULSIVE DISORDER
     Dosage: 300 MG, / DAY
     Route: 065
  7. CLOMIPRAMINE [Suspect]
     Dosage: 25 MG, HS
     Route: 065
  8. CLOMIPRAMINE [Suspect]
     Dosage: 100 MG, / DAY
     Route: 065
  9. CLOMIPRAMINE [Suspect]
     Dosage: 200 MG, HS
     Route: 065
  10. CLOMIPRAMINE [Suspect]
     Dosage: 150 MG, / DAY
     Route: 065
  11. CHLORPROMAZINE [Suspect]
     Indication: PSYCHIATRIC SYMPTOM
     Dosage: 50 MG, UNK
     Route: 065
  12. CHLORPROMAZINE [Suspect]
     Dosage: 100 MG, TID
     Route: 065
  13. CHLORPROMAZINE [Suspect]
     Dosage: 200 MG, TID
     Route: 065
  14. ATENOLOL [Concomitant]
     Indication: PRODUCT USED FOR UNKNOWN INDICATION
     Dosage: 50 MG, / DAY
     Route: 065
  15. ATENOLOL [Concomitant]
     Dosage: 25 MG, / DAY
     Route: 065
  16. DIVALPROEX SODIUM [Concomitant]
     Indication: PRODUCT USED FOR UNKNOWN INDICATION
     Dosage: 1250 MG, / DAY
     Route: 065
  17. DOCUSATE [Concomitant]
     Indication: PRODUCT USED FOR UNKNOWN INDICATION
     Dosage: 100 MG, / DAY
     Route: 065
  18. GLATIRAMER [Concomitant]
     Indication: PRODUCT USED FOR UNKNOWN INDICATION
     Dosage: 20 MG, / DAY
     Route: 065
  19. HYDROCHLOROTHIAZIDE [Concomitant]
     Indication: PRODUCT USED FOR UNKNOWN INDICATION
     Dosage: 25 MG, / DAY
     Route: 065
  20. HYDROCHLOROTHIAZIDE [Concomitant]
     Dosage: 50 MG, / DAY
     Route: 065
  21. MECLIZINE                          /00072801/ [Concomitant]
     Indication: PRODUCT USED FOR UNKNOWN INDICATION
     Dosage: 12.5 MG, TID
     Route: 065
  22. MULTIVITAMIN                       /00097801/ [Concomitant]
     Indication: PRODUCT USED FOR UNKNOWN INDICATION
     Dosage: UNK, UNKNOWN
     Route: 065

REACTIONS (2)
  - Pleurothotonus [Not Recovered/Not Resolved]
  - Drug interaction [Unknown]
